FAERS Safety Report 14023001 (Version 3)
Quarter: 2019Q2

REPORT INFORMATION
  Report Type: Spontaneous
  Country: US (occurrence: US)
  Receive Date: 20170928
  Receipt Date: 20190606
  Transmission Date: 20190711
  Serious: Yes (Other)
  Sender: FDA-Public Use
  Company Number: US-SA-2016SA194238

PATIENT
  Age: 40 Year
  Sex: Male
  Weight: 129.25 kg

DRUGS (2)
  1. AUBAGIO [Suspect]
     Active Substance: TERIFLUNOMIDE
     Indication: MULTIPLE SCLEROSIS
     Dosage: 7 MG,QD
     Route: 048
     Dates: start: 20160923
  2. AUBAGIO [Suspect]
     Active Substance: TERIFLUNOMIDE
     Dosage: 14 MG,QD
     Route: 048
     Dates: start: 201609

REACTIONS (6)
  - Flatulence [Unknown]
  - Haemorrhage [Unknown]
  - Pain [Unknown]
  - Urinary tract infection [Recovered/Resolved]
  - Catheter placement [Unknown]
  - Renal disorder [Unknown]

NARRATIVE: CASE EVENT DATE: 20160923
